FAERS Safety Report 25188857 (Version 1)
Quarter: 2025Q2

REPORT INFORMATION
  Report Type: Spontaneous
  Country: GB (occurrence: GB)
  Receive Date: 20250411
  Receipt Date: 20250411
  Transmission Date: 20250717
  Serious: Yes (Other)
  Sender: MYLAN
  Company Number: None

PATIENT

DRUGS (1)
  1. NEURONTIN [Suspect]
     Active Substance: GABAPENTIN
     Indication: Trigeminal neuralgia

REACTIONS (11)
  - Trigeminal neuralgia [Unknown]
  - Dysphagia [Unknown]
  - Aggression [Unknown]
  - Psychomotor hyperactivity [Unknown]
  - Mood swings [Unknown]
  - Feeling abnormal [Unknown]
  - Tearfulness [Unknown]
  - Hypoaesthesia oral [Unknown]
  - Muscle tightness [Unknown]
  - Dizziness [Unknown]
  - Anxiety [Unknown]
